FAERS Safety Report 5047684-5 (Version None)
Quarter: 2006Q3

REPORT INFORMATION
  Report Type: 
  Country: None (occurrence: None)
  Receive Date: 20060706
  Receipt Date: 20060706
  Transmission Date: 20061208
  Serious: Yes (Hospitalization)
  Sender: FDA-Public Use
  Company Number: None

PATIENT
  Age: 60 Year
  Sex: Male
  Weight: 115 kg

DRUGS (3)
  1. FOSINOPRIL SODIUM [Suspect]
     Indication: HYPERTENSION
     Dosage: 40MG BID PO
     Route: 048
     Dates: start: 20021201, end: 20060625
  2. VANCOMYCIN [Suspect]
     Indication: INFECTION
     Dosage: 1500MG  X1  IV
     Route: 042
     Dates: start: 20060624
  3. GENTAMICIN [Suspect]
     Indication: INFECTION
     Dosage: 90MG  X1  IV
     Route: 042
     Dates: start: 20060624

REACTIONS (11)
  - ANGIONEUROTIC OEDEMA [None]
  - BLOOD PRESSURE INCREASED [None]
  - BODY TEMPERATURE INCREASED [None]
  - CHOKING [None]
  - ERYTHEMA [None]
  - FOREIGN BODY TRAUMA [None]
  - HAEMATEMESIS [None]
  - INFECTION [None]
  - PENILE PAIN [None]
  - PENILE SWELLING [None]
  - WHITE BLOOD CELL COUNT INCREASED [None]
